FAERS Safety Report 6079883-8 (Version None)
Quarter: 2009Q1

REPORT INFORMATION
  Report Type: 
  Country: None (occurrence: None)
  Receive Date: 20090217
  Receipt Date: 20090205
  Transmission Date: 20090719
  Serious: Yes (Hospitalization, Disabling, Other)
  Sender: FDA-Public Use
  Company Number: US-ROCHE-408652

PATIENT
  Sex: Male
  Weight: 65.8 kg

DRUGS (4)
  1. ACCUTANE [Suspect]
     Indication: ACNE
     Route: 048
     Dates: start: 19970501, end: 19971022
  2. ACCUTANE [Suspect]
     Route: 048
     Dates: start: 19981007, end: 19990306
  3. IBUPROFEN [Concomitant]
     Dates: start: 19880101
  4. VALIUM [Concomitant]
     Indication: NAUSEA
     Dosage: ADDITIONAL INDICATION: PAIN

REACTIONS (21)
  - COLITIS [None]
  - COLITIS ULCERATIVE [None]
  - CONVERSION DISORDER [None]
  - CONVULSION [None]
  - CROHN'S DISEASE [None]
  - DEPRESSION [None]
  - DRUG DEPENDENCE [None]
  - GASTRIC DISORDER [None]
  - GASTROINTESTINAL DISORDER [None]
  - HAEMATEMESIS [None]
  - HEADACHE [None]
  - INFLAMMATORY BOWEL DISEASE [None]
  - INTESTINAL HAEMORRHAGE [None]
  - INTESTINAL OBSTRUCTION [None]
  - INTUSSUSCEPTION [None]
  - IRRITABLE BOWEL SYNDROME [None]
  - NAUSEA [None]
  - RECTAL HAEMORRHAGE [None]
  - RENAL FAILURE ACUTE [None]
  - VOMITING [None]
  - XEROSIS [None]
